FAERS Safety Report 6840902-X (Version None)
Quarter: 2010Q3

REPORT INFORMATION
  Report Type: 
  Country: None (occurrence: None)
  Receive Date: 20100709
  Receipt Date: 20100628
  Transmission Date: 20110219
  Serious: Yes (Hospitalization, Other)
  Sender: FDA-Public Use
  Company Number: RB-07414-2010

PATIENT
  Age: 30 Year
  Sex: Female

DRUGS (1)
  1. SUBOXONE [Suspect]
     Indication: DRUG DEPENDENCE
     Dosage: 24 MG SUBLINGUAL
     Route: 060
     Dates: start: 20081201

REACTIONS (7)
  - CELLULITIS [None]
  - CRYING [None]
  - HYPOAESTHESIA [None]
  - MASS [None]
  - MEMORY IMPAIRMENT [None]
  - MENORRHAGIA [None]
  - OEDEMA PERIPHERAL [None]
